FAERS Safety Report 22854274 (Version 3)
Quarter: 2024Q1

REPORT INFORMATION
  Report Type: Report from Study
  Country: CA (occurrence: CA)
  Receive Date: 20230823
  Receipt Date: 20240110
  Transmission Date: 20240410
  Serious: Yes (Hospitalization)
  Sender: FDA-Public Use
  Company Number: CA-AKCEA THERAPEUTICS, INC.-2023IS001591

PATIENT

DRUGS (16)
  1. TEGSEDI [Suspect]
     Active Substance: INOTERSEN SODIUM
     Indication: Hereditary neuropathic amyloidosis
     Dosage: 284 MILLIGRAM, QOW
     Route: 058
     Dates: start: 20210305
  2. TEGSEDI [Suspect]
     Active Substance: INOTERSEN SODIUM
     Dosage: UNK, QW
     Route: 065
  3. TYLENOL ARTHRITIS PAIN [Concomitant]
     Active Substance: ACETAMINOPHEN
     Indication: Product used for unknown indication
     Dosage: UNK, BID
     Route: 048
     Dates: start: 2019
  4. MELOXICAM [Concomitant]
     Active Substance: MELOXICAM
     Indication: Product used for unknown indication
     Dosage: UNK, BID
     Route: 048
     Dates: start: 2019
  5. MELOXICAM [Concomitant]
     Active Substance: MELOXICAM
     Dosage: 7.5 MILLIGRAM, TABLETS BID
     Route: 065
  6. CHLORTHALIDONE [Concomitant]
     Active Substance: CHLORTHALIDONE
     Indication: Hypertension
     Dosage: UNK, QD
     Route: 048
     Dates: start: 2019
  7. CHLORTHALIDONE [Concomitant]
     Active Substance: CHLORTHALIDONE
     Indication: Swelling
     Dosage: 50 MILLIGRAM, QD
     Route: 065
  8. NEXIUM [Concomitant]
     Active Substance: ESOMEPRAZOLE MAGNESIUM
     Indication: Product used for unknown indication
     Dosage: 40 MILLIGRAM, QD
     Route: 065
  9. EURO-FER [Concomitant]
     Indication: Product used for unknown indication
     Dosage: 300 MILLIGRAM, 1 QD
     Route: 065
  10. ASPIRIN [Concomitant]
     Active Substance: ASPIRIN
     Indication: Product used for unknown indication
     Dosage: 81 MILLIGRAM, 1 QD
     Route: 065
  11. CANDESARTAN [Concomitant]
     Active Substance: CANDESARTAN
     Indication: Product used for unknown indication
     Dosage: 32 MILLIGRAM, 1 QD
     Route: 065
  12. CADUET [Concomitant]
     Active Substance: AMLODIPINE BESYLATE\ATORVASTATIN CALCIUM
     Indication: Product used for unknown indication
     Dosage: 40/10 MG, 1 QHS
     Route: 065
  13. CADUET [Concomitant]
     Active Substance: AMLODIPINE BESYLATE\ATORVASTATIN CALCIUM
     Dosage: 40/5MG 1 PO QHS
     Route: 048
  14. EZETIMIBE [Concomitant]
     Active Substance: EZETIMIBE
     Indication: Product used for unknown indication
     Dosage: 10 MILLIGRAM, 1 QD
     Route: 065
  15. AMITRIPTYLINE [Concomitant]
     Active Substance: AMITRIPTYLINE
     Indication: Pain
     Dosage: UNK, QD
     Route: 048
     Dates: start: 202209
  16. EMPAGLIFLOZIN [Concomitant]
     Active Substance: EMPAGLIFLOZIN
     Indication: Product used for unknown indication
     Dosage: 10 MILLIGRAM, QD
     Route: 048

REACTIONS (18)
  - Fall [Unknown]
  - Muscular weakness [Unknown]
  - Pain [Not Recovered/Not Resolved]
  - Fall [Not Recovered/Not Resolved]
  - Back injury [Not Recovered/Not Resolved]
  - Head injury [Not Recovered/Not Resolved]
  - Disease progression [Not Recovered/Not Resolved]
  - Paraesthesia [Not Recovered/Not Resolved]
  - Muscle tightness [Not Recovered/Not Resolved]
  - Peripheral swelling [Not Recovered/Not Resolved]
  - Musculoskeletal discomfort [Unknown]
  - Limb discomfort [Unknown]
  - Walking disability [Unknown]
  - Glomerular filtration rate decreased [Unknown]
  - Back pain [Not Recovered/Not Resolved]
  - Dysuria [Not Recovered/Not Resolved]
  - Hypoaesthesia [Not Recovered/Not Resolved]
  - Neck pain [Not Recovered/Not Resolved]

NARRATIVE: CASE EVENT DATE: 20230528
